FAERS Safety Report 24653197 (Version 1)
Quarter: 2024Q4

REPORT INFORMATION
  Report Type: Report from Study
  Country: US (occurrence: US)
  Receive Date: 20241122
  Receipt Date: 20241122
  Transmission Date: 20250115
  Serious: Yes (Hospitalization)
  Sender: ALEXION PHARMACEUTICALS
  Company Number: US-AstraZeneca-CH-00748990A

PATIENT
  Weight: 58.5 kg

DRUGS (4)
  1. OLAPARIB [Suspect]
     Active Substance: OLAPARIB
     Indication: Ovarian cancer
  2. OLAPARIB [Suspect]
     Active Substance: OLAPARIB
  3. OLAPARIB [Suspect]
     Active Substance: OLAPARIB
  4. OLAPARIB [Suspect]
     Active Substance: OLAPARIB

REACTIONS (6)
  - COVID-19 [Unknown]
  - Blood sodium decreased [Unknown]
  - Urinary tract infection [Unknown]
  - Illness [Unknown]
  - Asthenia [Unknown]
  - Dysstasia [Unknown]
